FAERS Safety Report 15362395 (Version 1)
Quarter: 2018Q3

REPORT INFORMATION
  Report Type: Report from Study
  Country: US (occurrence: US)
  Receive Date: 20180907
  Receipt Date: 20180907
  Transmission Date: 20181010
  Serious: Yes (Death)
  Sender: FDA-Public Use
  Company Number: US-ADAMAS PHARMA, LLC-2018ADA01829

PATIENT
  Age: 78 Year
  Sex: Male

DRUGS (14)
  1. GOCOVRI [Suspect]
     Active Substance: AMANTADINE
     Indication: DYSKINESIA
     Dosage: 137 MG, 1X/DAY AT BEDTIME
     Route: 048
     Dates: start: 20180706, end: 20180712
  2. LISINOPRIL. [Concomitant]
     Active Substance: LISINOPRIL
  3. METOPROLOL. [Concomitant]
     Active Substance: METOPROLOL
  4. XARELTO [Concomitant]
     Active Substance: RIVAROXABAN
  5. CLOTRIMAZOLE. [Concomitant]
     Active Substance: CLOTRIMAZOLE
  6. FINASTERIDE. [Concomitant]
     Active Substance: FINASTERIDE
  7. AMITIZA [Concomitant]
     Active Substance: LUBIPROSTONE
  8. ZYRTEC [Concomitant]
     Active Substance: CETIRIZINE HYDROCHLORIDE
  9. CEPHALEXIN. [Concomitant]
     Active Substance: CEPHALEXIN
  10. CLOTRIMAZOLE / BETAMETHASONE [Concomitant]
  11. ZETIA [Concomitant]
     Active Substance: EZETIMIBE
  12. GOCOVRI [Suspect]
     Active Substance: AMANTADINE
     Dosage: 274 MG, 1X/DAY AT BEDTIME
     Route: 048
     Dates: start: 20180713, end: 201808
  13. SINEMET CR [Concomitant]
     Active Substance: CARBIDOPA\LEVODOPA
  14. CELEXA [Concomitant]
     Active Substance: CITALOPRAM HYDROBROMIDE

REACTIONS (2)
  - Death [Fatal]
  - Dry mouth [Not Recovered/Not Resolved]

NARRATIVE: CASE EVENT DATE: 2018
